FAERS Safety Report 8231256 (Version 2)
Quarter: 2014Q1

REPORT INFORMATION
  Report Type: Spontaneous
  Country: US (occurrence: US)
  Receive Date: 20111106
  Receipt Date: 20140304
  Transmission Date: 20141002
  Serious: No
  Sender: FDA-Public Use
  Company Number: US-AMGEN-USASP2011044733

PATIENT
  Age: 63 Year
  Sex: Female

DRUGS (8)
  1. ENBREL [Suspect]
     Indication: RHEUMATOID ARTHRITIS
     Dosage: 25 MG, 2 TIMES/WK
     Route: 058
     Dates: start: 20001101, end: 20110825
  2. METHOTREXATE [Concomitant]
     Dosage: 2.5 MG, UNK
     Dates: start: 20001101
  3. PAXIL                              /00500401/ [Concomitant]
     Dosage: 10 MG, UNK
  4. SIMVASTATIN [Concomitant]
     Dosage: 10 MG, UNK
  5. FOLIC ACID [Concomitant]
     Dosage: 1 UNK, UNK
  6. VITAMIN D                          /00107901/ [Concomitant]
     Dosage: 1000 UNIT, UNK
  7. CALCIUM [Concomitant]
  8. MULTIVITAMINS, PLAIN [Concomitant]

REACTIONS (4)
  - Nasal congestion [Not Recovered/Not Resolved]
  - Oropharyngeal pain [Not Recovered/Not Resolved]
  - Rhinorrhoea [Not Recovered/Not Resolved]
  - Nasopharyngitis [Unknown]
